FAERS Safety Report 7543721-4 (Version None)
Quarter: 2011Q2

REPORT INFORMATION
  Report Type: 
  Country: None (occurrence: None)
  Receive Date: 20110613
  Receipt Date: 20040409
  Transmission Date: 20111010
  Serious: Yes (Disabling)
  Sender: FDA-Public Use
  Company Number: PHHO2004JP05421

PATIENT
  Sex: Female

DRUGS (4)
  1. PREDNISOLONE [Concomitant]
     Indication: RENAL TRANSPLANT
     Dosage: 20-50 MG / DAY
     Route: 048
     Dates: start: 20021112, end: 20021116
  2. PROGRAF [Concomitant]
     Indication: RENAL TRANSPLANT
     Dosage: 5 MG/ DAY
     Route: 048
     Dates: start: 20021112, end: 20021113
  3. SIMULECT [Suspect]
     Indication: RENAL TRANSPLANT
     Dosage: 10 MG, ONCE/SINGLE
     Route: 042
     Dates: start: 20021113, end: 20021113
  4. MEDROL [Concomitant]
     Indication: RENAL TRANSPLANT
     Dosage: 8-28 MG / DAY
     Route: 048
     Dates: start: 20021112, end: 20021116

REACTIONS (3)
  - COMPLICATIONS OF TRANSPLANTED KIDNEY [None]
  - RENAL VEIN THROMBOSIS [None]
  - OLIGURIA [None]
